FAERS Safety Report 11971607 (Version 2)
Quarter: 2016Q1

REPORT INFORMATION
  Report Type: Spontaneous
  Country: US (occurrence: US)
  Receive Date: 20160128
  Receipt Date: 20160310
  Transmission Date: 20160526
  Serious: No
  Sender: FDA-Public Use
  Company Number: PHEH2016US001858

PATIENT
  Age: 46 Year
  Sex: Female
  Weight: 94.9 kg

DRUGS (1)
  1. RECLAST [Suspect]
     Active Substance: ZOLEDRONIC ACID
     Indication: OSTEOPOROSIS
     Dosage: 5 MG, UNK
     Route: 042
     Dates: start: 20151218

REACTIONS (5)
  - Noninfective sialoadenitis [Recovered/Resolved]
  - Nodule [Recovered/Resolved]
  - Tenderness [Unknown]
  - Influenza like illness [Unknown]
  - Pain in jaw [Recovered/Resolved]

NARRATIVE: CASE EVENT DATE: 20160120
